FAERS Safety Report 6356850-8 (Version None)
Quarter: 2009Q3

REPORT INFORMATION
  Report Type: 
  Country: None (occurrence: None)
  Receive Date: 20090915
  Receipt Date: 20090901
  Transmission Date: 20100115
  Serious: Yes (Other)
  Sender: FDA-Public Use
  Company Number: KR-PFIZER INC-2009262870

PATIENT
  Age: 80 Year

DRUGS (2)
  1. NEURONTIN [Suspect]
     Dosage: 600 MG, 2X/DAY
     Route: 048
     Dates: end: 20090713
  2. NEURONTIN [Suspect]
     Dosage: 300 MG, 2X/DAY
     Route: 048

REACTIONS (8)
  - AGITATION [None]
  - ANXIETY [None]
  - DRUG INEFFECTIVE [None]
  - HYPERTHYROIDISM [None]
  - INSOMNIA [None]
  - PAIN [None]
  - THROMBOSIS [None]
  - THYROID CYST [None]
